FAERS Safety Report 11862476 (Version 1)
Quarter: 2015Q4

REPORT INFORMATION
  Report Type: Spontaneous
  Country: US (occurrence: None)
  Receive Date: 20151222
  Receipt Date: 20151222
  Transmission Date: 20160305
  Serious: Yes (Disabling)
  Sender: FDA-Public Use
  Company Number: None

PATIENT
  Age: 41 Year
  Sex: Female
  Weight: 56.7 kg

DRUGS (2)
  1. REMICADE [Suspect]
     Active Substance: INFLIXIMAB
     Dosage: Q8W, INTO A VEIN
  2. REMICADE [Concomitant]
     Active Substance: INFLIXIMAB

REACTIONS (5)
  - Fatigue [None]
  - Arthralgia [None]
  - Decreased appetite [None]
  - Arthritis [None]
  - Psoriasis [None]

NARRATIVE: CASE EVENT DATE: 20151207
